APPROVED DRUG PRODUCT: EXEMESTANE
Active Ingredient: EXEMESTANE
Strength: 25MG
Dosage Form/Route: TABLET;ORAL
Application: A213547 | Product #001 | TE Code: AB
Applicant: QILU PHARMACEUTICAL CO LTD
Approved: Apr 13, 2020 | RLD: No | RS: No | Type: RX